FAERS Safety Report 7771996-5 (Version None)
Quarter: 2011Q3

REPORT INFORMATION
  Report Type: 
  Country: None (occurrence: None)
  Receive Date: 20110922
  Receipt Date: 20110427
  Transmission Date: 20111222
  Serious: No
  Sender: FDA-Public Use
  Company Number: US-ASTRAZENECA-2011SE24898

PATIENT
  Age: 27 Year
  Sex: Female
  Weight: 83.9 kg

DRUGS (2)
  1. SEROQUEL [Suspect]
     Indication: BIPOLAR DISORDER
     Route: 048
  2. PROZAC [Concomitant]
     Indication: OBSESSIVE-COMPULSIVE DISORDER

REACTIONS (4)
  - HEADACHE [None]
  - PRURITUS GENERALISED [None]
  - DRUG DOSE OMISSION [None]
  - NAUSEA [None]
